FAERS Safety Report 23494198 (Version 1)
Quarter: 2024Q1

REPORT INFORMATION
  Report Type: Spontaneous
  Country: US (occurrence: None)
  Receive Date: 20240207
  Receipt Date: 20240207
  Transmission Date: 20240410
  Serious: Yes (Hospitalization)
  Sender: FDA-Public Use
  Company Number: None

PATIENT
  Age: 42 Year
  Sex: Male
  Weight: 81 kg

DRUGS (2)
  1. XELODA [Suspect]
     Active Substance: CAPECITABINE
  2. ELOXATIN [Concomitant]
     Active Substance: OXALIPLATIN

REACTIONS (2)
  - Adenocarcinoma of colon [None]
  - Haemorrhoids [None]

NARRATIVE: CASE EVENT DATE: 20240202
